FAERS Safety Report 9503577 (Version 2)
Quarter: 2014Q1

REPORT INFORMATION
  Report Type: Spontaneous
  Country: FR (occurrence: FR)
  Receive Date: 20130906
  Receipt Date: 20140107
  Transmission Date: 20141002
  Serious: Yes (Other)
  Sender: FDA-Public Use
  Company Number: FR-ELI_LILLY_AND_COMPANY-FR201308009517

PATIENT
  Age: 79 Year
  Sex: Male

DRUGS (6)
  1. EFIENT [Suspect]
     Indication: PERIPHERAL ARTERIAL OCCLUSIVE DISEASE
     Dosage: 10 MG, QD
     Route: 048
     Dates: start: 201104, end: 201309
  2. EFIENT [Suspect]
     Dosage: 10 MG, QOD
     Route: 048
  3. KARDEGIC [Concomitant]
     Dosage: UNK
     Dates: end: 201309
  4. VERCYTE [Concomitant]
     Indication: POLYCYTHAEMIA VERA
  5. COVERAM ARG [Concomitant]
     Indication: HYPERTENSION
  6. INEGY [Concomitant]
     Indication: HYPERCHOLESTEROLAEMIA

REACTIONS (5)
  - Blindness [Unknown]
  - Optic neuritis [Unknown]
  - Eye haemorrhage [Unknown]
  - Inappropriate schedule of drug administration [Unknown]
  - Off label use [Unknown]
